FAERS Safety Report 8847946 (Version 2)
Quarter: 2012Q4

REPORT INFORMATION
  Report Type: 
  Country: US (occurrence: US)
  Receive Date: 20121018
  Receipt Date: 20121101
  Transmission Date: 20130627
  Serious: Yes (Hospitalization)
  Sender: FDA-Public Use
  Company Number: US-BAXTER-2012BAX019866

PATIENT
  Age: 43 Year
  Sex: Male

DRUGS (2)
  1. DIANEAL LOW CALCIUM [Suspect]
     Indication: PERITONEAL DIALYSIS
     Route: 033
     Dates: end: 20120920
  2. DIANEAL LOW CALCIUM [Suspect]
     Route: 033
     Dates: start: 20121008

REACTIONS (2)
  - Azotaemia [Recovered/Resolved]
  - Gastrointestinal haemorrhage [Recovered/Resolved]
